FAERS Safety Report 10516375 (Version 1)
Quarter: 2014Q4

REPORT INFORMATION
  Report Type: Spontaneous
  Country: AU (occurrence: AU)
  Receive Date: 20141014
  Receipt Date: 20141014
  Transmission Date: 20150528
  Serious: Yes (Death)
  Sender: FDA-Public Use
  Company Number: AU-MYLANLABS-2014M1007132

PATIENT

DRUGS (4)
  1. LAMOTRIGINE. [Suspect]
     Active Substance: LAMOTRIGINE
     Route: 065
  2. QUETIAPINE [Suspect]
     Active Substance: QUETIAPINE
     Route: 065
  3. DILTIAZEM [Suspect]
     Active Substance: DILTIAZEM
     Route: 065
  4. DULOXETINE [Suspect]
     Active Substance: DULOXETINE
     Route: 065

REACTIONS (2)
  - Intentional self-injury [Fatal]
  - Toxicity to various agents [Fatal]
